FAERS Safety Report 12819028 (Version 1)
Quarter: 2016Q4

REPORT INFORMATION
  Report Type: Spontaneous
  Country: DE (occurrence: DE)
  Receive Date: 20161006
  Receipt Date: 20161006
  Transmission Date: 20170207
  Serious: Yes (Hospitalization, Other)
  Sender: FDA-Public Use
  Company Number: DE-MYLANLABS-2016M1043036

PATIENT

DRUGS (2)
  1. ETOPOSIDE. [Suspect]
     Active Substance: ETOPOSIDE
     Indication: NASAL SINUS CANCER
     Dosage: 270 MG/M2 KOF, 100%; Q29; Q57, 3CYCLES
     Route: 065
  2. CISPLATIN. [Suspect]
     Active Substance: CISPLATIN
     Indication: NASAL SINUS CANCER
     Dosage: 90 MG/M2 KOF 100%, Q29; Q57, 3 CYCLES
     Route: 065

REACTIONS (6)
  - Thrombocytopenia [Recovering/Resolving]
  - Cytomegalovirus infection [Recovering/Resolving]
  - Incontinence [Recovering/Resolving]
  - Disorientation [Recovering/Resolving]
  - Ataxia [Recovering/Resolving]
  - Agitation [Recovering/Resolving]
